FAERS Safety Report 12708825 (Version 1)
Quarter: 2016Q3

REPORT INFORMATION
  Report Type: Spontaneous
  Country: MY (occurrence: MY)
  Receive Date: 20160901
  Receipt Date: 20160901
  Transmission Date: 20161109
  Serious: Yes (Hospitalization)
  Sender: FDA-Public Use
  Company Number: MY-ASTRAZENECA-2016SE91946

PATIENT
  Age: 26030 Day
  Sex: Male

DRUGS (6)
  1. ASPIRIN. [Concomitant]
     Active Substance: ASPIRIN
  2. COAPROVEL [Concomitant]
     Active Substance: HYDROCHLOROTHIAZIDE\IRBESARTAN
     Indication: HYPERPARATHYROIDISM
     Dosage: 300MG/12.5MG TWO TIMES A DAY
     Route: 048
     Dates: start: 2015
  3. INSULIN [Concomitant]
     Active Substance: INSULIN NOS
     Indication: MYOCARDIAL ISCHAEMIA
     Dates: start: 2015
  4. VASTAREL [Concomitant]
     Active Substance: TRIMETAZIDINE DIHYDROCHLORIDE
     Indication: MYOCARDIAL ISCHAEMIA
     Route: 048
     Dates: start: 2015
  5. PANTOPRAZOLE [Concomitant]
     Active Substance: PANTOPRAZOLE SODIUM
     Indication: GASTRIC DISORDER
     Route: 048
     Dates: start: 2015
  6. BRILINTA [Suspect]
     Active Substance: TICAGRELOR
     Indication: CORONARY ANGIOPLASTY
     Dosage: TWO TIMES A DAY
     Route: 048
     Dates: start: 20160803

REACTIONS (1)
  - Post procedural stroke [Unknown]

NARRATIVE: CASE EVENT DATE: 20160810
